FAERS Safety Report 4724342-5 (Version None)
Quarter: 2005Q3

REPORT INFORMATION
  Report Type: 
  Country: None (occurrence: None)
  Receive Date: 20050720
  Receipt Date: 20050720
  Transmission Date: 20060218
  Serious: Yes (Other)
  Sender: FDA-Public Use
  Company Number: None

PATIENT
  Age: 13 Year
  Sex: Female
  Weight: 82 kg

DRUGS (3)
  1. GADOLINIUM [Suspect]
     Dosage: 18 ML
     Dates: start: 20050308
  2. VINCRISTINE [Concomitant]
  3. SARCOMA FILGRASTIM [Concomitant]

REACTIONS (1)
  - EYE SWELLING [None]
